FAERS Safety Report 4354636-7 (Version None)
Quarter: 2004Q2

REPORT INFORMATION
  Report Type: 
  Country: None (occurrence: None)
  Receive Date: 20040506
  Receipt Date: 20040506
  Transmission Date: 20050107
  Serious: Yes (Life-Threatening, Hospitalization)
  Sender: FDA-Public Use
  Company Number: None

PATIENT
  Age: 55 Year
  Sex: Male
  Weight: 104.3 kg

DRUGS (26)
  1. SEROQUEL [Suspect]
     Indication: MAJOR DEPRESSION
     Dosage: 50 MG QHS
     Dates: start: 20040121, end: 20040122
  2. SEROQUEL [Suspect]
     Indication: PSYCHOTIC DISORDER
     Dosage: 50 MG QHS
     Dates: start: 20040121, end: 20040122
  3. SEROQUEL [Suspect]
     Indication: PSYCHOTIC DISORDER
     Dosage: 100 MG QHS
     Dates: start: 20040123, end: 20040124
  4. VERSED [Concomitant]
  5. TORADOL [Concomitant]
  6. DEMEROL [Concomitant]
  7. MARCAINE [Concomitant]
  8. DURAMORPH PF [Concomitant]
  9. BENADRYL [Concomitant]
  10. DILAUDID [Concomitant]
  11. COUMADIN [Concomitant]
  12. ANCEF [Concomitant]
  13. TOPROL-XL [Concomitant]
  14. SYNTHROID [Concomitant]
  15. GLUCOPHAGE [Concomitant]
  16. XANAX [Concomitant]
  17. COZAAR [Concomitant]
  18. K-DUR 10 [Concomitant]
  19. VICODIN [Concomitant]
  20. ATIVAN [Concomitant]
  21. RESTORIL [Concomitant]
  22. ANZEMET [Concomitant]
  23. DURAGESIC [Concomitant]
  24. NORVASC [Concomitant]
  25. AVELOX [Concomitant]
  26. CATAPRES-TTS-1 [Concomitant]

REACTIONS (1)
  - NEUROLEPTIC MALIGNANT SYNDROME [None]
